FAERS Safety Report 17439995 (Version 3)
Quarter: 2020Q1

REPORT INFORMATION
  Report Type: Spontaneous
  Country: US (occurrence: US)
  Receive Date: 20200220
  Receipt Date: 20200313
  Transmission Date: 20200409
  Serious: No
  Sender: FDA-Public Use
  Company Number: US-PFIZER INC-2020064392

PATIENT
  Age: 62 Year
  Sex: Male

DRUGS (1)
  1. LYRICA [Suspect]
     Active Substance: PREGABALIN
     Dosage: 300 MG, 2X/DAY [(TWO) TIMES DAILY FOR 366 DOSES]
     Route: 048

REACTIONS (4)
  - Pain [Unknown]
  - Limb discomfort [Unknown]
  - Hypoacusis [Unknown]
  - Product prescribing issue [Unknown]
